FAERS Safety Report 16529699 (Version 1)
Quarter: 2019Q3

REPORT INFORMATION
  Report Type: Other
  Country: DE (occurrence: DE)
  Receive Date: 20190704
  Receipt Date: 20190704
  Transmission Date: 20191004
  Serious: No
  Sender: FDA-Public Use
  Company Number: DE-LUPIN PHARMACEUTICALS INC.-2019-00026

PATIENT
  Age: 54 Year
  Sex: Male
  Weight: 84 kg

DRUGS (1)
  1. SIMVASTATIN. [Suspect]
     Active Substance: SIMVASTATIN
     Indication: PRODUCT USED FOR UNKNOWN INDICATION
     Dosage: UNK, 1-0-1/2
     Route: 065
     Dates: start: 201708, end: 201812

REACTIONS (2)
  - Arthralgia [Unknown]
  - Myalgia [Unknown]
